FAERS Safety Report 9834169 (Version 2)
Quarter: 2014Q2

REPORT INFORMATION
  Report Type: Spontaneous
  Country: US (occurrence: US)
  Receive Date: 20140122
  Receipt Date: 20140602
  Transmission Date: 20141212
  Serious: No
  Sender: FDA-Public Use
  Company Number: US-009507513-1401USA006302

PATIENT
  Sex: Male

DRUGS (5)
  1. PROPECIA [Suspect]
     Indication: ANDROGENETIC ALOPECIA
     Dosage: 1 MG, UNK
     Route: 048
     Dates: start: 20110503, end: 20110802
  2. PROPECIA [Suspect]
     Dosage: 5 MG, UNK
     Route: 048
     Dates: start: 20110802, end: 20120122
  3. FINASTERIDE [Suspect]
     Indication: ANDROGENETIC ALOPECIA
     Dosage: 1 MG, UNK
     Dates: start: 20110503, end: 20110802
  4. FINASTERIDE [Suspect]
     Dosage: 5 MG, UNK
     Dates: start: 20110802, end: 20120122
  5. FLONASE [Concomitant]
     Indication: SEASONAL ALLERGY
     Dosage: UNK
     Dates: start: 2009, end: 2014

REACTIONS (6)
  - Self esteem decreased [Unknown]
  - Anxiety [Unknown]
  - Sexual dysfunction [Not Recovered/Not Resolved]
  - Erectile dysfunction [Not Recovered/Not Resolved]
  - Ejaculation disorder [Not Recovered/Not Resolved]
  - Depression [Unknown]
